FAERS Safety Report 19759623 (Version 1)
Quarter: 2021Q3

REPORT INFORMATION
  Report Type: Report from Study
  Country: CA (occurrence: CA)
  Receive Date: 20210829
  Receipt Date: 20210829
  Transmission Date: 20211014
  Serious: Yes (Hospitalization)
  Sender: FDA-Public Use
  Company Number: CA-BAUSCH-BL-2021-029036

PATIENT
  Age: 62 Year
  Sex: Male

DRUGS (2)
  1. SILIQ [Suspect]
     Active Substance: BRODALUMAB
     Indication: PSORIASIS
     Dosage: 210MG/ 1.5 ML
     Route: 058
     Dates: start: 20210526, end: 202106
  2. SILIQ [Suspect]
     Active Substance: BRODALUMAB
     Route: 058
     Dates: start: 202106, end: 2021

REACTIONS (2)
  - Product dose omission issue [Unknown]
  - Hospitalisation [Not Recovered/Not Resolved]

NARRATIVE: CASE EVENT DATE: 2021
